FAERS Safety Report 25337888 (Version 1)
Quarter: 2025Q2

REPORT INFORMATION
  Report Type: Spontaneous
  Country: US (occurrence: US)
  Receive Date: 20250520
  Receipt Date: 20250520
  Transmission Date: 20250716
  Serious: No
  Sender: COREPHARMA LLC
  Company Number: US-CorePharma LLC-2177080

PATIENT

DRUGS (5)
  1. SUMATRIPTAN SUCCINATE [Suspect]
     Active Substance: SUMATRIPTAN SUCCINATE
     Indication: Migraine
  2. TOPIRAMATE [Suspect]
     Active Substance: TOPIRAMATE
  3. TYLENOL [Suspect]
     Active Substance: ACETAMINOPHEN
  4. IBUPROFEN [Suspect]
     Active Substance: IBUPROFEN
  5. MAGNESIUM [Suspect]
     Active Substance: MAGNESIUM

REACTIONS (4)
  - Ocular discomfort [Unknown]
  - Drug ineffective [Unknown]
  - Musculoskeletal stiffness [Unknown]
  - Joint stiffness [Unknown]
